FAERS Safety Report 20861851 (Version 1)
Quarter: 2022Q2

REPORT INFORMATION
  Report Type: Report from Study
  Country: KR (occurrence: KR)
  Receive Date: 20220523
  Receipt Date: 20220523
  Transmission Date: 20220720
  Serious: Yes (Hospitalization)
  Sender: FDA-Public Use
  Company Number: KR-GLAXOSMITHKLINE-KR2022GSK080707

PATIENT

DRUGS (9)
  1. FLUTICASONE FUROATE\UMECLIDINIUM BROMIDE\VILANTEROL TRIFENATATE [Suspect]
     Active Substance: FLUTICASONE FUROATE\UMECLIDINIUM BROMIDE\VILANTEROL TRIFENATATE
     Indication: Chronic obstructive pulmonary disease
     Dosage: 1 DF, QD
     Route: 055
     Dates: start: 20220114
  2. ERDOSTEINE [Concomitant]
     Active Substance: ERDOSTEINE
     Indication: Chronic obstructive pulmonary disease
     Dosage: 1 DF, TID
     Route: 048
     Dates: start: 20181008
  3. TWOTINECHOL [Concomitant]
     Indication: Benign prostatic hyperplasia
     Dosage: 1 DF, QD
     Route: 048
     Dates: start: 20211217
  4. HARNAL [Concomitant]
     Active Substance: TAMSULOSIN HYDROCHLORIDE
     Indication: Benign prostatic hyperplasia
     Dosage: 1 DF, QD
     Route: 048
     Dates: start: 20210525
  5. TORSEMIDE [Concomitant]
     Active Substance: TORSEMIDE
     Indication: Cardiac failure
     Dosage: 0.5 DF, QD
     Route: 048
     Dates: start: 20210524
  6. DIGOXIN [Concomitant]
     Active Substance: DIGOXIN
     Indication: Cardiac failure
     Dosage: 0.5 DF, QD
     Route: 048
     Dates: start: 20210618
  7. NEBISTOL [Concomitant]
     Indication: Hypertension
     Dosage: 0.5 DF, QD
     Route: 048
     Dates: start: 20210524
  8. FACTIVE [Concomitant]
     Active Substance: GEMIFLOXACIN MESYLATE
     Indication: Infection prophylaxis
     Dosage: 1 DF, TID
     Route: 048
     Dates: start: 20210702
  9. NEXIUM [Concomitant]
     Active Substance: ESOMEPRAZOLE MAGNESIUM
     Indication: Prophylaxis
     Dosage: 1 DF, QD
     Route: 048
     Dates: start: 20210521

REACTIONS (1)
  - Chronic obstructive pulmonary disease [Recovered/Resolved]

NARRATIVE: CASE EVENT DATE: 20220502
